FAERS Safety Report 12729986 (Version 2)
Quarter: 2017Q3

REPORT INFORMATION
  Report Type: Spontaneous
  Country: HU (occurrence: HU)
  Receive Date: 20160909
  Receipt Date: 20170913
  Transmission Date: 20171127
  Serious: Yes (Life-Threatening)
  Sender: FDA-Public Use
  Company Number: HU-ABBVIE-16P-076-1720006-00

PATIENT
  Age: 59 Year
  Sex: Male

DRUGS (1)
  1. SEVOFRANE [Suspect]
     Active Substance: SEVOFLURANE
     Indication: ANAESTHESIA
     Route: 055

REACTIONS (1)
  - Hyperthermia malignant [Recovered/Resolved]
